FAERS Safety Report 12980663 (Version 1)
Quarter: 2016Q4

REPORT INFORMATION
  Report Type: Spontaneous
  Country: US (occurrence: US)
  Receive Date: 20161128
  Receipt Date: 20161128
  Transmission Date: 20170207
  Serious: Yes (Hospitalization, Other)
  Sender: FDA-Public Use
  Company Number: US-ASTRAZENECA-2016SF24326

PATIENT
  Age: 61 Year
  Sex: Male

DRUGS (1)
  1. FORXIGA [Suspect]
     Active Substance: DAPAGLIFLOZIN
     Indication: TYPE 2 DIABETES MELLITUS
     Route: 048
     Dates: start: 20150602

REACTIONS (4)
  - Diabetic ketoacidosis [Unknown]
  - Urinary tract infection [Unknown]
  - Renal injury [Unknown]
  - Urosepsis [Unknown]

NARRATIVE: CASE EVENT DATE: 20150707
